FAERS Safety Report 8423213-0 (Version None)
Quarter: 2012Q2

REPORT INFORMATION
  Report Type: 
  Country: None (occurrence: None)
  Receive Date: 20120608
  Receipt Date: 20120530
  Transmission Date: 20120825
  Serious: Yes (Other)
  Sender: FDA-Public Use
  Company Number: US-JNJFOC-20120504014

PATIENT
  Age: 90 Year
  Sex: Female

DRUGS (3)
  1. CORDARONE [Suspect]
     Indication: CARDIAC DISORDER
     Route: 065
     Dates: start: 20060101
  2. AN UNKNOWN MEDICATION [Suspect]
     Indication: PRODUCT USED FOR UNKNOWN INDICATION
     Route: 065
  3. IBUPROFEN [Suspect]
     Indication: PAIN
     Route: 065

REACTIONS (7)
  - MALAISE [None]
  - SWOLLEN TONGUE [None]
  - HEADACHE [None]
  - HYPERSENSITIVITY [None]
  - BLINDNESS [None]
  - SURGERY [None]
  - DIZZINESS [None]
